FAERS Safety Report 6541578 (Version 3)
Quarter: 2012Q4

REPORT INFORMATION
  Report Type: 
  Country: ES (occurrence: ES)
  Receive Date: 20080201
  Receipt Date: 20121210
  Transmission Date: 20130627
  Serious: Yes (Death, Hospitalization, Other)
  Sender: FDA-Public Use
  Company Number: PHHO2008ES01675

PATIENT
  Age: 65 Year
  Sex: Female
  Weight: 100 kg

DRUGS (24)
  1. CYCLOSPORINE [Suspect]
     Indication: RENAL TRANSPLANT
     Dosage: 100 mg, twice daily
     Route: 048
     Dates: start: 20040220, end: 20040313
  2. DACLIZUMAB [Suspect]
     Indication: RENAL TRANSPLANT
     Dosage: 200 mg, ONCE/SINGLE
     Route: 042
     Dates: start: 20040219
  3. DACLIZUMAB [Suspect]
     Dosage: 100 mg, every 2 weeks
     Route: 042
     Dates: end: 20040304
  4. MYCOPHENOLATE MOFETIL [Suspect]
     Indication: RENAL TRANSPLANT
     Dosage: 1000 mg, twice daily
     Route: 048
     Dates: start: 20040219
  5. MYCOPHENOLATE MOFETIL [Suspect]
     Dosage: 1500 mg twice daily
     Route: 048
     Dates: start: 20040305
  6. MYCOPHENOLATE MOFETIL [Suspect]
     Dosage: 1000 mg twice daily
     Route: 048
     Dates: start: 20040309, end: 20040313
  7. PREDNISONE [Suspect]
     Indication: RENAL TRANSPLANT
     Dosage: 20 mg, QD
     Route: 048
     Dates: start: 20040220
  8. STEROIDS NOS [Suspect]
     Indication: IMMUNOSUPPRESSION
     Dosage: 250 mg daily
     Route: 042
     Dates: start: 20040219
  9. STEROIDS NOS [Suspect]
     Dosage: 125 mg once daily
     Route: 042
     Dates: start: 20040220
  10. STEROIDS NOS [Suspect]
     Dosage: 20 mg once daily
     Route: 048
     Dates: start: 20040221
  11. STEROIDS NOS [Suspect]
     Dosage: 250 mg once daily
     Route: 042
     Dates: start: 20040304, end: 20040311
  12. SEPTRIN [Concomitant]
  13. MYCOSTATIN [Concomitant]
  14. CAOSINA [Concomitant]
  15. ARANESP [Concomitant]
  16. CLEXANE [Concomitant]
  17. TRANGOREX [Concomitant]
  18. LEXATIN [Concomitant]
  19. AMIODARONE [Concomitant]
  20. TENORMIN [Concomitant]
  21. CEFAZOLIN [Concomitant]
  22. COTRIMOXAZOL [Concomitant]
  23. DARBEPOETIN ALFA [Concomitant]
  24. LOSEC [Concomitant]

REACTIONS (14)
  - Sepsis [Fatal]
  - Discomfort [Fatal]
  - Haemodynamic instability [Fatal]
  - Leukopenia [Fatal]
  - Thrombocytopenia [Fatal]
  - Perineal abscess [Fatal]
  - Pyelonephritis [Fatal]
  - Atrial fibrillation [Fatal]
  - Kidney transplant rejection [Unknown]
  - Tachycardia [Unknown]
  - Arrhythmia [Unknown]
  - Diarrhoea [Unknown]
  - Vomiting [Unknown]
  - Weight decreased [Unknown]
